FAERS Safety Report 4375978-5 (Version None)
Quarter: 2004Q2

REPORT INFORMATION
  Report Type: 
  Country: None (occurrence: None)
  Receive Date: 20040609
  Receipt Date: 20040609
  Transmission Date: 20050107
  Serious: No
  Sender: FDA-Public Use
  Company Number: None

PATIENT
  Age: 53 Year
  Sex: Male
  Weight: 85.5 kg

DRUGS (3)
  1. SIMVASTATIN [Suspect]
     Indication: HYPERLIPIDAEMIA
     Dosage: 40 MG DAILY ORAL
     Route: 048
     Dates: start: 20040114, end: 20040413
  2. CYCLOSPORINE [Concomitant]
  3. SANDIMMUNE [Concomitant]

REACTIONS (2)
  - ASTHENIA [None]
  - BLOOD CREATINE PHOSPHOKINASE INCREASED [None]
